FAERS Safety Report 10412565 (Version 1)
Quarter: 2014Q2

REPORT INFORMATION
  Report Type: Spontaneous
  Country: US (occurrence: None)
  Receive Date: 20140604
  Receipt Date: 20140604
  Transmission Date: 20141212
  Serious: Yes (Other)
  Sender: FDA-Public Use
  Company Number: 163-POMAL-14033623

PATIENT
  Age: 64 Year
  Sex: Female

DRUGS (9)
  1. POMALYST (POMALIDOMIDE) (2 MILLIGRAM, CAPSULES) [Suspect]
     Indication: PLASMA CELL MYELOMA
     Dosage: 2 MG, 21 IN 28 D
     Route: 048
     Dates: start: 20140204, end: 20140215
  2. N/M ESSENTIAL MULTI WOMAN (MULTIVITAMINS) [Concomitant]
  3. SERQUEL XR (QUETIAPINE FUMARATE) [Concomitant]
  4. ACYCLOVIR (ACICLOVIR) (ACICLOVIR) [Concomitant]
  5. EFFEXOR XR (VENLAFAXINE HYDROCHLORIDE) (75 MILLIGRAM, CAPSULE) (VENLAFAXINE HYDROCHLORIDE) [Concomitant]
  6. VITAMIN D (ERGOCALCIFEROL) [Concomitant]
  7. MULTI FOR HER (MULTIVITAMINS) [Concomitant]
  8. AMBIEN (ZOLPIDEM TARTRATE) [Concomitant]
  9. PENICILLIN VK (PHONOXYMETHYLPENICILLIN POTASSIUM) [Concomitant]

REACTIONS (3)
  - Dehydration [None]
  - Pulmonary embolism [None]
  - Dyspnoea [None]
